FAERS Safety Report 6026086-9 (Version None)
Quarter: 2008Q4

REPORT INFORMATION
  Report Type: 
  Country: None (occurrence: None)
  Receive Date: 20081230
  Receipt Date: 20081216
  Transmission Date: 20090506
  Serious: Yes (Death)
  Sender: FDA-Public Use
  Company Number: APP200801160

PATIENT
  Age: 82 Year
  Sex: Female
  Weight: 75.7 kg

DRUGS (27)
  1. MIDAZOLAM HYDROCHLORIDE [Suspect]
     Indication: ENDOTRACHEAL INTUBATION
     Dosage: INTRAVENOUS
     Route: 042
     Dates: start: 20081002, end: 20081002
  2. ETOMIDATE [Suspect]
     Indication: ENDOTRACHEAL INTUBATION
     Dosage: INTRAVENOUS
     Route: 042
     Dates: start: 20081002, end: 20081002
  3. COMBIVENT [Concomitant]
  4. FERROUS SULFATE TAB [Concomitant]
  5. POLYCARBOPHIL (POLYCARBOPHIL) [Concomitant]
  6. ISOSORBIDE MONONIRATE [Concomitant]
  7. ACETYLSALICYLIC ACID SRT [Concomitant]
  8. ENOXAPARIN SODIUM [Concomitant]
  9. MAG-OX (MAGNESIUM OXIDE) [Concomitant]
  10. BLINDED THERAPY [Suspect]
     Indication: PNEUMONIA
     Dosage: FREQUENCY BID, INTRAVENOUS
     Route: 042
     Dates: start: 20081002, end: 20081008
  11. NOVOLIN [Concomitant]
  12. PANTOPRAZOLE SODIUM [Concomitant]
  13. SENNA [Concomitant]
  14. MONTELUKAST SODIUM [Concomitant]
  15. METHYLPREDNISOLONE [Concomitant]
  16. SOTALOL HCL [Concomitant]
  17. SIMVASTATIN [Concomitant]
  18. AVELOX [Concomitant]
  19. VANCOMYCIN [Concomitant]
  20. CALCIUM GLUCONATE [Concomitant]
  21. FENTANYL-100 [Concomitant]
  22. KAYEXALATE [Concomitant]
  23. PREVACID [Concomitant]
  24. DEXTROSE [Concomitant]
  25. PERIDEX (DEXAMETHASONE) [Concomitant]
  26. HYDRALIAZINE (HYDRALIAZINE) [Concomitant]
  27. LANTUS [Concomitant]

REACTIONS (2)
  - CARDIO-RESPIRATORY ARREST [None]
  - HEPATITIS TOXIC [None]
